FAERS Safety Report 7035853-4 (Version None)
Quarter: 2010Q4

REPORT INFORMATION
  Report Type: 
  Country: None (occurrence: None)
  Receive Date: 20101008
  Receipt Date: 20100928
  Transmission Date: 20110411
  Serious: Yes (Other)
  Sender: FDA-Public Use
  Company Number: TW-WYE-H18026110

PATIENT

DRUGS (1)
  1. TORISEL [Suspect]
     Dosage: 25 MG/ML; FREQUENCY UNKNOWN
     Route: 042
     Dates: start: 20100501

REACTIONS (1)
  - HEPATIC ENZYME INCREASED [None]
